FAERS Safety Report 4895514-4 (Version None)
Quarter: 2006Q1

REPORT INFORMATION
  Report Type: 
  Country: None (occurrence: None)
  Receive Date: 20060130
  Receipt Date: 20060119
  Transmission Date: 20060701
  Serious: Yes (Other)
  Sender: FDA-Public Use
  Company Number: JP-SANOFI-SYNTHELABO-A01200600600

PATIENT
  Sex: Female

DRUGS (3)
  1. OXALIPLATIN [Suspect]
     Route: 042
     Dates: start: 20060116, end: 20060116
  2. CALCIUM LEVOFOLINATE [Suspect]
     Route: 042
     Dates: start: 20060116, end: 20060116
  3. FLUOROURACIL [Suspect]
     Route: 042
     Dates: start: 20050912

REACTIONS (1)
  - ASTHMA [None]
